FAERS Safety Report 4883656-9 (Version None)
Quarter: 2006Q1

REPORT INFORMATION
  Report Type: 
  Country: None (occurrence: None)
  Receive Date: 20060113
  Receipt Date: 20051228
  Transmission Date: 20060701
  Serious: Yes (Other)
  Sender: FDA-Public Use
  Company Number: US200512004406

PATIENT
  Age: 78 Year
  Sex: Female

DRUGS (5)
  1. HUMULIN 70/30 [Suspect]
     Indication: DIABETES MELLITUS
     Dosage: 3/D
     Dates: start: 19890101
  2. PLAVIX [Concomitant]
  3. DIOVAN [Concomitant]
  4. ATENOLOL [Concomitant]
  5. ASA (ASPIRIN (ACETYLSALICYLIC ACID) [Concomitant]

REACTIONS (6)
  - BREAST CANCER FEMALE [None]
  - CATARACT [None]
  - CORONARY ARTERIAL STENT INSERTION [None]
  - PANCREATIC CARCINOMA [None]
  - PHARMACEUTICAL PRODUCT COMPLAINT [None]
  - TRIGGER FINGER [None]
